FAERS Safety Report 10056905 (Version 2)
Quarter: 2014Q2

REPORT INFORMATION
  Report Type: Report from Study
  Country: US (occurrence: US)
  Receive Date: 20140403
  Receipt Date: 20140418
  Transmission Date: 20141212
  Serious: Yes (Death)
  Sender: FDA-Public Use
  Company Number: US-JNJFOC-20140401907

PATIENT
  Age: 19 Year
  Sex: Male
  Weight: 87.9 kg

DRUGS (4)
  1. REMICADE [Suspect]
     Indication: INFLAMMATORY BOWEL DISEASE
     Route: 042
     Dates: start: 20060314
  2. SINGULAIR [Concomitant]
     Route: 065
  3. ZOLOFT [Concomitant]
     Route: 065
  4. LISDEXAMFETAMINE DIMESYLATE [Concomitant]
     Route: 065

REACTIONS (2)
  - Head injury [Fatal]
  - Road traffic accident [Fatal]
